FAERS Safety Report 4763627-3 (Version None)
Quarter: 2005Q3

REPORT INFORMATION
  Report Type: 
  Country: None (occurrence: None)
  Receive Date: 20050901
  Receipt Date: 20050726
  Transmission Date: 20060218
  Serious: No
  Sender: FDA-Public Use
  Company Number: 200511497BWH

PATIENT
  Age: 46 Year
  Sex: Male

DRUGS (1)
  1. LEVITRA [Suspect]
     Dosage: 5 MG , ONCE ORAL
     Route: 048
     Dates: start: 20050723

REACTIONS (2)
  - HEADACHE [None]
  - NASAL CONGESTION [None]
